FAERS Safety Report 10234098 (Version 2)
Quarter: 2014Q2

REPORT INFORMATION
  Report Type: Report from Study
  Country: BR (occurrence: BR)
  Receive Date: 20140612
  Receipt Date: 20140612
  Transmission Date: 20141212
  Serious: Yes (Death, Other)
  Sender: FDA-Public Use
  Company Number: BR-ABBVIE-12P-020-0979064-00

PATIENT
  Age: 65 Year
  Sex: Male
  Weight: 89 kg

DRUGS (16)
  1. HUMIRA [Suspect]
     Indication: PSORIASIS
     Dates: start: 20080627
  2. HUMIRA [Suspect]
     Indication: RHEUMATOID ARTHRITIS
     Dates: end: 2013
  3. HUMIRA [Suspect]
  4. DIGOXIN [Concomitant]
     Indication: PRODUCT USED FOR UNKNOWN INDICATION
     Dates: start: 1997
  5. MAREVAN [Concomitant]
     Indication: PRODUCT USED FOR UNKNOWN INDICATION
     Dates: start: 1997
  6. ENALAPRIL [Concomitant]
     Indication: PRODUCT USED FOR UNKNOWN INDICATION
     Dates: start: 1997
  7. SIMVASCOR [Concomitant]
     Indication: PRODUCT USED FOR UNKNOWN INDICATION
     Dates: start: 2007
  8. GLIFAGE [Concomitant]
     Indication: PRODUCT USED FOR UNKNOWN INDICATION
     Dates: start: 2011
  9. VERAPAMIL [Concomitant]
     Indication: ARRHYTHMIA
     Dates: start: 2011
  10. PURAN T4 [Concomitant]
     Indication: PRODUCT USED FOR UNKNOWN INDICATION
     Dates: start: 2007
  11. ZOLPIDEM [Concomitant]
     Indication: SLEEP DISORDER THERAPY
     Dates: start: 2010
  12. UNKNOWN DRUG [Concomitant]
     Indication: BLOOD CHOLESTEROL
  13. UNKNOWN DRUG [Concomitant]
     Indication: ARRHYTHMIA
  14. UNKNOWN DRUG [Concomitant]
     Indication: HYPERTENSION
  15. UNKNOWN DRUG [Concomitant]
     Indication: CARDIAC DISORDER
  16. UNKNOWN DRUG [Concomitant]
     Indication: THYROID DISORDER

REACTIONS (9)
  - Laryngeal cancer metastatic [Fatal]
  - Laryngeal cancer [Recovered/Resolved]
  - Depression [Unknown]
  - Psoriasis [Recovered/Resolved]
  - Psoriasis [Recovered/Resolved]
  - Dysphonia [Unknown]
  - Drug ineffective [Unknown]
  - Somnolence [Unknown]
  - Depression [Unknown]
